FAERS Safety Report 20145901 (Version 1)
Quarter: 2021Q4

REPORT INFORMATION
  Report Type: Spontaneous
  Country: US (occurrence: None)
  Receive Date: 20211203
  Receipt Date: 20211203
  Transmission Date: 20220303
  Serious: Yes (Hospitalization)
  Sender: FDA-Public Use
  Company Number: None

PATIENT
  Age: 71 Year
  Sex: Male
  Weight: 69 kg

DRUGS (2)
  1. CASIRIVIMAB [Suspect]
     Active Substance: CASIRIVIMAB
     Route: 042
     Dates: start: 20211029, end: 20211129
  2. IMDEVIMAB [Suspect]
     Active Substance: IMDEVIMAB
     Dates: start: 20211129, end: 20211129

REACTIONS (3)
  - Gastric haemorrhage [None]
  - Cough [None]
  - Wheezing [None]

NARRATIVE: CASE EVENT DATE: 20211129
